FAERS Safety Report 8142127-7 (Version None)
Quarter: 2012Q1

REPORT INFORMATION
  Report Type: 
  Country: None (occurrence: None)
  Receive Date: 20120103
  Receipt Date: 20120103
  Transmission Date: 20120608
  Serious: No
  Sender: FDA-Public Use
  Company Number: AE-2011-002361

PATIENT
  Age: 50 Year
  Sex: Male
  Weight: 73.4827 kg

DRUGS (5)
  1. PEGINTERFERON ALFA-2A [Concomitant]
  2. INCIVEK [Suspect]
     Dosage: 2250 MG (750 MG,3 IN 1 D),ORAL
     Route: 048
     Dates: start: 20111011
  3. LISINOPRIL [Concomitant]
  4. DIAZEPAM [Concomitant]
  5. RIBAVIRIN [Concomitant]

REACTIONS (4)
  - FAECES HARD [None]
  - RASH ERYTHEMATOUS [None]
  - ANORECTAL DISCOMFORT [None]
  - INGUINAL HERNIA [None]
